FAERS Safety Report 21558087 (Version 1)
Quarter: 2022Q4

REPORT INFORMATION
  Report Type: Spontaneous
  Country: US (occurrence: US)
  Receive Date: 20221107
  Receipt Date: 20221107
  Transmission Date: 20230113
  Serious: No
  Sender: FDA-Public Use
  Company Number: US-drreddys-SPO/USA/22/0155932

PATIENT
  Age: 27 Year
  Sex: Female

DRUGS (1)
  1. ZENATANE [Suspect]
     Active Substance: ISOTRETINOIN
     Indication: Product used for unknown indication
     Dosage: RMA ISSUE DATE: 06/SEP/2022;02:12:43 PM, 02/AUG/2022;12:25:49 PM, 30/JUN/2022;11:57:20 AM, 31/MAY/20

REACTIONS (1)
  - Treatment noncompliance [Unknown]
